FAERS Safety Report 16576814 (Version 1)
Quarter: 2019Q3

REPORT INFORMATION
  Report Type: Spontaneous
  Country: FR (occurrence: FR)
  Receive Date: 20190716
  Receipt Date: 20190716
  Transmission Date: 20191004
  Serious: Yes (Hospitalization)
  Sender: FDA-Public Use
  Company Number: FR-GLAXOSMITHKLINE-FR2019126436

PATIENT
  Age: 25 Year
  Sex: Female

DRUGS (1)
  1. IMIGRANE [Suspect]
     Active Substance: SUMATRIPTAN SUCCINATE
     Indication: MIGRAINE
     Dosage: 20 MG, QD
     Route: 045
     Dates: start: 20190424, end: 20190424

REACTIONS (2)
  - Chest discomfort [Recovered/Resolved]
  - Chest pain [Recovered/Resolved]

NARRATIVE: CASE EVENT DATE: 20190424
